FAERS Safety Report 13102114 (Version 1)
Quarter: 2017Q1

REPORT INFORMATION
  Report Type: Report from Study
  Country: GB (occurrence: GB)
  Receive Date: 20170110
  Receipt Date: 20170110
  Transmission Date: 20170428
  Serious: Yes (Hospitalization)
  Sender: FDA-Public Use
  Company Number: GB-JNJFOC-20160602874

PATIENT
  Sex: Female

DRUGS (1)
  1. STELARA [Suspect]
     Active Substance: USTEKINUMAB
     Indication: PSORIASIS
     Dosage: ONE SYRINGE ON WEEK 4 AS DIRECTED
     Route: 058

REACTIONS (4)
  - Myalgia [Unknown]
  - Drug dose omission [Unknown]
  - Back pain [Unknown]
  - Psoriasis [Unknown]
